FAERS Safety Report 11944783 (Version 1)
Quarter: 2016Q1

REPORT INFORMATION
  Report Type: Spontaneous
  Country: JP (occurrence: JP)
  Receive Date: 20160125
  Receipt Date: 20160125
  Transmission Date: 20160526
  Serious: Yes (Death, Other)
  Sender: FDA-Public Use
  Company Number: JP-EMD SERONO-8063657

PATIENT
  Sex: Male

DRUGS (1)
  1. SEROPHENE [Suspect]
     Active Substance: CLOMIPHENE CITRATE
     Indication: INFERTILITY
     Route: 064

REACTIONS (4)
  - Hepatic failure [Fatal]
  - Neonatal pneumonia [Unknown]
  - Low birth weight baby [Unknown]
  - Neonatal respiratory distress syndrome [Unknown]
